FAERS Safety Report 7297528-6 (Version None)
Quarter: 2011Q1

REPORT INFORMATION
  Report Type: 
  Country: None (occurrence: None)
  Receive Date: 20110216
  Receipt Date: 20110204
  Transmission Date: 20110831
  Serious: Yes (Death)
  Sender: FDA-Public Use
  Company Number: AT-ACTELION-A-CH2011-44729

PATIENT
  Sex: Male

DRUGS (1)
  1. TRACLEER [Suspect]
     Dosage: 62.5 MG, UNK
     Route: 048
     Dates: start: 20100729

REACTIONS (1)
  - DEATH [None]
